FAERS Safety Report 8535532-8 (Version None)
Quarter: 2012Q3

REPORT INFORMATION
  Report Type: 
  Country: None (occurrence: None)
  Receive Date: 20120717
  Receipt Date: 20120717
  Transmission Date: 20120928
  Serious: No
  Sender: FDA-Public Use
  Company Number: None

PATIENT
  Age: 59 Year
  Sex: Male
  Weight: 92 kg

DRUGS (2)
  1. BOCEPREVIR [Suspect]
     Indication: HEPATITIS C
     Dosage: MG PO ; MG BID PO
     Route: 048
     Dates: start: 20120214
  2. BOCEPREVIR [Suspect]
     Indication: HEPATITIS C
     Dosage: MG PO ; MG BID PO
     Route: 048
     Dates: start: 20120120

REACTIONS (3)
  - NEUTROPENIA [None]
  - HYPERBILIRUBINAEMIA [None]
  - ANAEMIA [None]
